FAERS Safety Report 10182891 (Version 1)
Quarter: 2014Q2

REPORT INFORMATION
  Report Type: Spontaneous
  Country: US (occurrence: US)
  Receive Date: 20140520
  Receipt Date: 20140520
  Transmission Date: 20141212
  Serious: Yes (Other)
  Sender: FDA-Public Use
  Company Number: US-SA-2014SA064303

PATIENT
  Age: 62 Year
  Sex: Female

DRUGS (2)
  1. ALLEGRA D [Suspect]
     Dosage: DOSE: 60/120 MGDAILY
     Route: 048
  2. ALLEGRA D [Suspect]
     Indication: MIDDLE EAR EFFUSION
     Dosage: DOSE: 60/120 MGDAILY
     Route: 048

REACTIONS (4)
  - Suicidal ideation [Not Recovered/Not Resolved]
  - Depression [Not Recovered/Not Resolved]
  - Feeling abnormal [Not Recovered/Not Resolved]
  - Abnormal behaviour [Not Recovered/Not Resolved]
